FAERS Safety Report 7271719-2 (Version None)
Quarter: 2011Q1

REPORT INFORMATION
  Report Type: 
  Country: None (occurrence: None)
  Receive Date: 20110203
  Receipt Date: 20110127
  Transmission Date: 20110831
  Serious: Yes (Death, Hospitalization)
  Sender: FDA-Public Use
  Company Number: ES-CELGENEUS-144-21880-11012768

PATIENT
  Sex: Male

DRUGS (5)
  1. ADIRO [Concomitant]
     Indication: PROPHYLAXIS
     Route: 048
     Dates: start: 20070101, end: 20101208
  2. SEPTRIM [Suspect]
     Indication: PROPHYLAXIS
     Route: 048
     Dates: start: 20101203, end: 20101208
  3. PANTOPRAZOLE [Concomitant]
     Indication: PROPHYLAXIS
     Route: 048
     Dates: start: 20070101
  4. REVLIMID [Suspect]
     Indication: MULTIPLE MYELOMA
     Route: 048
     Dates: start: 20101203, end: 20101208
  5. DEXAMETHASONE [Suspect]
     Indication: MULTIPLE MYELOMA
     Route: 065
     Dates: start: 20101203, end: 20101208

REACTIONS (1)
  - ACUTE HEPATIC FAILURE [None]
